FAERS Safety Report 4886614-3 (Version None)
Quarter: 2005Q4

REPORT INFORMATION
  Report Type: 
  Country: None (occurrence: None)
  Receive Date: 20051220
  Receipt Date: 20050506
  Transmission Date: 20060501
  Serious: Yes (Life-Threatening, Other)
  Sender: FDA-Public Use
  Company Number: HQWYE595109MAY05

PATIENT
  Age: 42 Year
  Sex: Female

DRUGS (2)
  1. EFFEXOR XR [Suspect]
     Indication: DEPRESSION
     Dosage: ORAL
     Route: 048
     Dates: start: 20050322, end: 20050324
  2. PROZAC [Concomitant]

REACTIONS (1)
  - SUICIDE ATTEMPT [None]
